FAERS Safety Report 7460487-7 (Version None)
Quarter: 2011Q2

REPORT INFORMATION
  Report Type: 
  Country: None (occurrence: None)
  Receive Date: 20110505
  Receipt Date: 20110428
  Transmission Date: 20111010
  Serious: Yes (Hospitalization)
  Sender: FDA-Public Use
  Company Number: US-JNJFOC-20100103051

PATIENT
  Sex: Female
  Weight: 130.2 kg

DRUGS (9)
  1. EPIPEN [Concomitant]
  2. TRAZODONE HCL [Concomitant]
  3. TOPIRAMATE [Concomitant]
  4. VITAMIN D [Concomitant]
  5. IMURAN [Concomitant]
  6. INFLIXIMAB [Suspect]
     Indication: INFLAMMATORY BOWEL DISEASE
     Route: 042
  7. ORTHO EVRA [Concomitant]
  8. PREVACID [Concomitant]
  9. PREDNISONE [Concomitant]

REACTIONS (1)
  - CELLULITIS [None]
